FAERS Safety Report 13800685 (Version 2)
Quarter: 2017Q3

REPORT INFORMATION
  Report Type: Spontaneous
  Country: FR (occurrence: FR)
  Receive Date: 20170727
  Receipt Date: 20170823
  Transmission Date: 20171127
  Serious: Yes (Hospitalization, Other)
  Sender: FDA-Public Use
  Company Number: FR-PFIZER INC-2017318982

PATIENT
  Age: 89 Year
  Sex: Female

DRUGS (5)
  1. PREVISCAN /00789001/ [Suspect]
     Active Substance: FLUINDIONE
     Indication: VENOUS THROMBOSIS
     Dosage: UNK, DAILY
     Route: 048
     Dates: start: 201701, end: 20170613
  2. TARDYFERON B9 [Suspect]
     Active Substance: FERROUS SULFATE\FOLIC ACID
     Dosage: UNK
     Route: 048
     Dates: start: 20170517, end: 20170613
  3. AMLOR [Suspect]
     Active Substance: AMLODIPINE BESYLATE
     Indication: HYPERTENSION
     Dosage: 5 MG, DAILY
     Route: 048
  4. MIMPARA [Suspect]
     Active Substance: CINACALCET HYDROCHLORIDE
     Indication: HYPERPARATHYROIDISM PRIMARY
     Dosage: 30 MG, DAILY
     Route: 048
     Dates: start: 20170315, end: 20170607
  5. PARIET [Suspect]
     Active Substance: RABEPRAZOLE SODIUM
     Indication: HIATUS HERNIA
     Dosage: 10 MG, DAILY
     Route: 048
     Dates: end: 20170613

REACTIONS (6)
  - Colitis [Unknown]
  - Hypokalaemia [Unknown]
  - Nausea [Unknown]
  - Faeces discoloured [Unknown]
  - General physical health deterioration [Unknown]
  - Diverticulitis [Unknown]

NARRATIVE: CASE EVENT DATE: 201705
